FAERS Safety Report 13917765 (Version 2)
Quarter: 2018Q3

REPORT INFORMATION
  Report Type: Spontaneous
  Country: US (occurrence: US)
  Receive Date: 20170829
  Receipt Date: 20180917
  Transmission Date: 20181010
  Serious: Yes (Other)
  Sender: FDA-Public Use
  Company Number: US-DSJP-DSU-2017-132124

PATIENT

DRUGS (1)
  1. AZOR [Suspect]
     Active Substance: AMLODIPINE BESYLATE\OLMESARTAN MEDOXOMIL
     Indication: PRODUCT USED FOR UNKNOWN INDICATION
     Dosage: 5?40 MG , QD
     Route: 048
     Dates: start: 20120608

REACTIONS (5)
  - Diverticulitis [Not Recovered/Not Resolved]
  - Gastrooesophageal reflux disease [Unknown]
  - Weight decreased [Recovering/Resolving]
  - Cellulitis [Unknown]
  - Hiatus hernia [Unknown]

NARRATIVE: CASE EVENT DATE: 20151012
